FAERS Safety Report 18256329 (Version 1)
Quarter: 2020Q3

REPORT INFORMATION
  Report Type: Spontaneous
  Country: US (occurrence: US)
  Receive Date: 20200911
  Receipt Date: 20200911
  Transmission Date: 20201103
  Serious: No
  Sender: FDA-Public Use
  Company Number: US-AUROBINDO-AUR-APL-2019-094322

PATIENT
  Age: 3 Year
  Sex: Female
  Weight: 16 kg

DRUGS (1)
  1. RANITIDINE SYRUP 15MG/5ML [Suspect]
     Active Substance: RANITIDINE HYDROCHLORIDE
     Indication: GASTROOESOPHAGEAL REFLUX DISEASE
     Dosage: 10 MILLILITER, TWO TIMES A DAY (5ML IN THE MORNING, 5 ML AT NIGHT)
     Route: 065
     Dates: start: 20190912, end: 20191125

REACTIONS (1)
  - Feeding disorder [Recovered/Resolved]

NARRATIVE: CASE EVENT DATE: 20191126
